FAERS Safety Report 19034114 (Version 8)
Quarter: 2022Q1

REPORT INFORMATION
  Report Type: Report from Study
  Country: US (occurrence: US)
  Receive Date: 20210319
  Receipt Date: 20220212
  Transmission Date: 20220423
  Serious: No
  Sender: FDA-Public Use
  Company Number: NVSC2021US062758

PATIENT
  Sex: Female

DRUGS (2)
  1. COSENTYX [Suspect]
     Active Substance: SECUKINUMAB
     Indication: Psoriasis
     Dosage: 300 MG, QW (WEEKLY X 5 THEN Q4W)
     Route: 058
     Dates: start: 20210210
  2. COSENTYX [Suspect]
     Active Substance: SECUKINUMAB
     Dosage: 300 MG, QMO ( 150 * 2)
     Route: 065

REACTIONS (3)
  - Psoriasis [Unknown]
  - Urticaria [Not Recovered/Not Resolved]
  - Rash [Unknown]
